FAERS Safety Report 5013423-7 (Version None)
Quarter: 2006Q2

REPORT INFORMATION
  Report Type: 
  Country: None (occurrence: None)
  Receive Date: 20060530
  Receipt Date: 20060406
  Transmission Date: 20061013
  Serious: Yes (Hospitalization)
  Sender: FDA-Public Use
  Company Number: GB-BRISTOL-MYERS SQUIBB COMPANY-13338512

PATIENT
  Age: 67 Year
  Sex: Male

DRUGS (7)
  1. CDDP [Suspect]
     Indication: GASTRIC CANCER
     Route: 041
     Dates: start: 20060315, end: 20060315
  2. FLUOROURACIL [Suspect]
     Indication: GASTRIC CANCER
     Route: 041
     Dates: start: 20060315, end: 20060319
  3. THEOPHYLLINE [Concomitant]
     Indication: ASTHMA
     Dates: start: 20060101
  4. RABEPRAZOLE SODIUM [Concomitant]
     Indication: ANTACID THERAPY
     Route: 048
     Dates: start: 20051101
  5. DOCUSATE SODIUM [Concomitant]
     Indication: CONSTIPATION
     Route: 048
     Dates: start: 20060101
  6. METOCLOPRAMIDE [Concomitant]
     Indication: NAUSEA
     Route: 055
     Dates: start: 20050601
  7. SERETIDE [Concomitant]
     Indication: ASTHMA
     Route: 055
     Dates: start: 19930101

REACTIONS (3)
  - ANAEMIA [None]
  - CONSTIPATION [None]
  - DEHYDRATION [None]
